FAERS Safety Report 5890020-2 (Version None)
Quarter: 2008Q3

REPORT INFORMATION
  Report Type: 
  Country: None (occurrence: None)
  Receive Date: 20080919
  Receipt Date: 20080911
  Transmission Date: 20090109
  Serious: Yes (Other)
  Sender: FDA-Public Use
  Company Number: JP-ABBOTT-08P-087-0457964-00

PATIENT
  Age: 61 Year
  Sex: Male
  Weight: 52 kg

DRUGS (5)
  1. SEVOFLURANE [Suspect]
     Indication: GENERAL ANAESTHESIA
     Dosage: 1 %
     Route: 055
  2. VECURONIUM BROMIDE [Suspect]
     Indication: DRUG USE FOR UNKNOWN INDICATION
     Dosage: UNKNOWN
     Route: 065
  3. THIAMYLAL SODIUM [Concomitant]
     Indication: ANAESTHESIA
     Route: 065
  4. SUXAMETHONIUM CHLORIDE [Concomitant]
     Indication: ANAESTHESIA
     Route: 065
  5. FENTANYL CITRATE [Concomitant]
     Indication: ANAESTHESIA
     Route: 065

REACTIONS (4)
  - DIPLEGIA [None]
  - EXTRADURAL ABSCESS [None]
  - GLOSSOPTOSIS [None]
  - RESPIRATION ABNORMAL [None]
